FAERS Safety Report 16455919 (Version 1)
Quarter: 2019Q2

REPORT INFORMATION
  Report Type: Spontaneous
  Country: ES (occurrence: ES)
  Receive Date: 20190619
  Receipt Date: 20190619
  Transmission Date: 20190711
  Serious: Yes (Death, Other)
  Sender: FDA-Public Use
  Company Number: ES-CELLTRION INC.-2019ES019750

PATIENT

DRUGS (3)
  1. PYRIDOSTIGMINE [Suspect]
     Active Substance: PYRIDOSTIGMINE
     Indication: MYASTHENIA GRAVIS
     Dosage: UNK
     Route: 065
  2. IMUREL                             /00001501/ [Suspect]
     Active Substance: AZATHIOPRINE SODIUM
     Indication: MYASTHENIA GRAVIS
     Dosage: UNK
     Route: 065
  3. RITUXIMAB (UNKNOWN) [Suspect]
     Active Substance: RITUXIMAB
     Indication: MYASTHENIA GRAVIS
     Dosage: 750MG/M2 AS 2 SEPARATE DOSES
     Route: 042

REACTIONS (5)
  - Off label use [Unknown]
  - Myasthenia gravis [Fatal]
  - Lung infection [Unknown]
  - Intentional product use issue [Unknown]
  - Respiratory failure [Fatal]
